FAERS Safety Report 18552021 (Version 2)
Quarter: 2021Q3

REPORT INFORMATION
  Report Type: Other
  Country: US (occurrence: US)
  Receive Date: 20201127
  Receipt Date: 20210814
  Transmission Date: 20211014
  Serious: Yes (Other)
  Sender: FDA-Public Use
  Company Number: US-ROCHE-2721223

PATIENT
  Sex: Male

DRUGS (1)
  1. ESBRIET [Suspect]
     Active Substance: PIRFENIDONE
     Indication: IDIOPATHIC PULMONARY FIBROSIS
     Dosage: TOOK 3 TABLET(S) BY MOUTH
     Route: 048

REACTIONS (11)
  - Contusion [Unknown]
  - Product dose omission in error [Unknown]
  - Fatigue [Unknown]
  - Decreased appetite [Unknown]
  - Rhinorrhoea [Unknown]
  - Diabetes mellitus [Unknown]
  - Ageusia [Unknown]
  - Weight decreased [Unknown]
  - Cough [Unknown]
  - Malaise [Unknown]
  - Increased viscosity of bronchial secretion [Unknown]
